FAERS Safety Report 8044217-6 (Version None)
Quarter: 2011Q4

REPORT INFORMATION
  Report Type: 
  Country: None (occurrence: None)
  Receive Date: 20111202
  Receipt Date: 20110104
  Transmission Date: 20120403
  Serious: Yes (Disabling, Other)
  Sender: FDA-Public Use
  Company Number: WAES 1007USA02361

PATIENT
  Age: 83 Year
  Sex: Female
  Weight: 45.3597 kg

DRUGS (5)
  1. NORVASC [Concomitant]
  2. EVISTA [Concomitant]
  3. FOSAMAX [Suspect]
     Indication: OSTEOPOROSIS
     Dosage: 10MG/DAILY/PO, 70 MG/WKY/PO, 70 MG/WKY/PO
     Route: 048
     Dates: start: 20010924, end: 20070601
  4. FOSAMAX [Suspect]
     Indication: OSTEOPOROSIS
     Dosage: 10MG/DAILY/PO, 70 MG/WKY/PO, 70 MG/WKY/PO
     Route: 048
     Dates: start: 20000724, end: 20060703
  5. FOSAMAX [Suspect]
     Indication: OSTEOPOROSIS
     Dosage: 10MG/DAILY/PO, 70 MG/WKY/PO, 70 MG/WKY/PO
     Route: 048
     Dates: start: 20000724, end: 20010924

REACTIONS (34)
  - CEREBRAL ISCHAEMIA [None]
  - GASTRIC DISORDER [None]
  - GASTROOESOPHAGEAL REFLUX DISEASE [None]
  - TOOTH DISORDER [None]
  - PURULENT DISCHARGE [None]
  - HYPOAESTHESIA [None]
  - ADNEXA UTERI CYST [None]
  - NEURODEGENERATIVE DISORDER [None]
  - DENTAL CARIES [None]
  - DRUG INTOLERANCE [None]
  - FISTULA [None]
  - GASTRITIS [None]
  - PRESBYOESOPHAGUS [None]
  - OESOPHAGITIS [None]
  - TRISMUS [None]
  - OEDEMA PERIPHERAL [None]
  - CEREBRAL HAEMANGIOMA [None]
  - FALL [None]
  - GASTRIC ULCER [None]
  - MUSCULOSKELETAL CHEST PAIN [None]
  - OSTEONECROSIS OF JAW [None]
  - DYSPEPSIA [None]
  - URINARY TRACT INFECTION [None]
  - RIB FRACTURE [None]
  - PELVIC FRACTURE [None]
  - PARAESTHESIA [None]
  - NOCTURIA [None]
  - OESOPHAGEAL DISORDER [None]
  - INTERVERTEBRAL DISC DEGENERATION [None]
  - HIATUS HERNIA [None]
  - WEIGHT DECREASED [None]
  - TEMPOROMANDIBULAR JOINT SYNDROME [None]
  - DYSPHAGIA [None]
  - OSTEOMYELITIS [None]
